FAERS Safety Report 9826964 (Version 1)
Quarter: 2014Q1

REPORT INFORMATION
  Report Type: Spontaneous
  Country: US (occurrence: US)
  Receive Date: 20140117
  Receipt Date: 20140117
  Transmission Date: 20141002
  Serious: No
  Sender: FDA-Public Use
  Company Number: US-GLAXOSMITHKLINE-A1022060A

PATIENT
  Age: 61 Year
  Sex: Female

DRUGS (3)
  1. PROMACTA [Suspect]
     Indication: IMMUNE THROMBOCYTOPENIC PURPURA
     Dosage: 25MG PER DAY
     Route: 048
     Dates: start: 20120125
  2. ZOFRAN [Concomitant]
  3. COMPAZINE [Concomitant]

REACTIONS (2)
  - Nausea [Unknown]
  - Vomiting [Not Recovered/Not Resolved]
